FAERS Safety Report 4296821-9 (Version None)
Quarter: 2004Q1

REPORT INFORMATION
  Report Type: 
  Country: None (occurrence: None)
  Receive Date: 20040126
  Receipt Date: 20031008
  Transmission Date: 20041129
  Serious: No
  Sender: FDA-Public Use
  Company Number: USA030741739

PATIENT
  Age: 9 Year
  Sex: Male
  Weight: 30 kg

DRUGS (4)
  1. STRATTERA [Suspect]
     Indication: ATTENTION DEFICIT/HYPERACTIVITY DISORDER
     Dosage: 50 MG/DAY
     Dates: start: 20030701
  2. ZYPREXA [Suspect]
     Indication: TOURETTE'S DISORDER
     Dosage: 5 MG/DAY
     Dates: start: 20030723
  3. ZOLOFT [Concomitant]
  4. TENEX [Concomitant]

REACTIONS (2)
  - DRUG INEFFECTIVE [None]
  - WEIGHT INCREASED [None]
